FAERS Safety Report 5465139-0 (Version None)
Quarter: 2007Q3

REPORT INFORMATION
  Report Type: 
  Country: None (occurrence: None)
  Receive Date: 20070820
  Receipt Date: 20070424
  Transmission Date: 20080115
  Serious: No
  Sender: FDA-Public Use
  Company Number: WAES 0704USA05379

PATIENT
  Age: 58 Year
  Sex: Female

DRUGS (15)
  1. JANUVIA [Suspect]
     Indication: TYPE 2 DIABETES MELLITUS
     Dosage: 50 MG/DAILY/PO
     Route: 048
     Dates: start: 20070116, end: 20070319
  2. DIOVAN [Concomitant]
  3. LOTREL [Concomitant]
  4. PHILLIPS' MIL OF MAGNESIA [Concomitant]
  5. ASCORBIC ACID [Concomitant]
  6. ASPIRIN [Concomitant]
  7. CALCIUM (UNSPECIFIED) [Concomitant]
  8. COD LIVER OIL [Concomitant]
  9. CYANOCOBALAMIN [Concomitant]
  10. GASTROINTESTINAL PREPARATIONS [Concomitant]
  11. GLYBURIDE [Concomitant]
  12. HYDROCHLOROTHIAZIDE [Concomitant]
  13. METOPROLOL TARTRATE [Concomitant]
  14. VITAMIN E [Concomitant]
  15. VITAMINS  (UNSPECIFIED) [Concomitant]

REACTIONS (1)
  - DYSGEUSIA [None]
